FAERS Safety Report 9871172 (Version 1)
Quarter: 2014Q1

REPORT INFORMATION
  Report Type: Spontaneous
  Country: FR (occurrence: FR)
  Receive Date: 20140205
  Receipt Date: 20140205
  Transmission Date: 20141002
  Serious: Yes (Life-Threatening, Hospitalization)
  Sender: FDA-Public Use
  Company Number: FR-SA-2014SA011427

PATIENT
  Age: 75 Year
  Sex: Male

DRUGS (2)
  1. LANTUS [Suspect]
     Indication: DIABETES MELLITUS
     Route: 058
  2. NOVORAPID [Suspect]
     Indication: DIABETES MELLITUS
     Dosage: 6 TO 8 U ON MORNING , 8 TO 12 U ON MIDDAY AND EVENING
     Route: 058

REACTIONS (4)
  - Subdural haematoma [Recovered/Resolved]
  - Psychomotor retardation [Recovered/Resolved]
  - Speech disorder [Recovered/Resolved]
  - Hypoglycaemia [Recovered/Resolved]
